FAERS Safety Report 24992633 (Version 1)
Quarter: 2025Q1

REPORT INFORMATION
  Report Type: Spontaneous
  Country: US (occurrence: US)
  Receive Date: 20250221
  Receipt Date: 20250221
  Transmission Date: 20250409
  Serious: No
  Sender: ALEXION PHARMACEUTICALS
  Company Number: US-AstraZeneca-CH-00809245A

PATIENT
  Age: 93 Year

DRUGS (1)
  1. WAINUA [Suspect]
     Active Substance: EPLONTERSEN
     Indication: Amyloidosis
     Route: 050

REACTIONS (3)
  - Hypoaesthesia [Unknown]
  - Illness [Unknown]
  - Pain in extremity [Unknown]
